FAERS Safety Report 10081265 (Version 2)
Quarter: 2014Q2

REPORT INFORMATION
  Report Type: Spontaneous
  Country: US (occurrence: US)
  Receive Date: 20140416
  Receipt Date: 20140501
  Transmission Date: 20141212
  Serious: No
  Sender: FDA-Public Use
  Company Number: US-PFIZER INC-2014103872

PATIENT
  Age: 38 Year
  Sex: Female
  Weight: 71.66 kg

DRUGS (2)
  1. GABAPENTIN [Suspect]
     Indication: FIBROMYALGIA
     Dosage: 300 MG, SINGLE
     Dates: start: 20140213, end: 20140213
  2. LEVOTHYROXINE [Concomitant]
     Indication: HYPOTHYROIDISM
     Dosage: 50 UG, DAILY

REACTIONS (3)
  - Drug ineffective [Unknown]
  - Confusional state [Recovered/Resolved]
  - Fear [Recovered/Resolved]
